FAERS Safety Report 5663101-6 (Version None)
Quarter: 2008Q1

REPORT INFORMATION
  Report Type: 
  Country: None (occurrence: None)
  Receive Date: 20080313
  Receipt Date: 20080306
  Transmission Date: 20080703
  Serious: Yes (Other)
  Sender: FDA-Public Use
  Company Number: A0713823A

PATIENT
  Age: 40 Year
  Sex: Male
  Weight: 93.2 kg

DRUGS (4)
  1. PAXIL CR [Suspect]
     Dosage: 37.5MG UNKNOWN
     Route: 048
     Dates: start: 20040101
  2. ABILIFY [Concomitant]
  3. ZYPREXA [Concomitant]
  4. AMBIEN [Concomitant]

REACTIONS (5)
  - DRUG INEFFECTIVE [None]
  - OVERDOSE [None]
  - PSYCHOMOTOR HYPERACTIVITY [None]
  - SUICIDE ATTEMPT [None]
  - THERAPEUTIC RESPONSE UNEXPECTED [None]
